FAERS Safety Report 6073871-3 (Version None)
Quarter: 2009Q1

REPORT INFORMATION
  Report Type: 
  Country: None (occurrence: None)
  Receive Date: 20090211
  Receipt Date: 20090202
  Transmission Date: 20090719
  Serious: Yes (Death, Other)
  Sender: FDA-Public Use
  Company Number: PE-PFIZER INC-2009165958

PATIENT

DRUGS (1)
  1. LIPITOR [Suspect]
     Indication: DYSLIPIDAEMIA
     Dosage: 10 MG, 1X/DAY
     Dates: start: 20080118

REACTIONS (3)
  - ISCHAEMIC STROKE [None]
  - NEPHROLITHIASIS [None]
  - RENAL FAILURE [None]
